FAERS Safety Report 9098960 (Version 2)
Quarter: 2013Q3

REPORT INFORMATION
  Report Type: Spontaneous
  Country: US (occurrence: US)
  Receive Date: 20130213
  Receipt Date: 20130801
  Transmission Date: 20140515
  Serious: No
  Sender: FDA-Public Use
  Company Number: US-009507513-1302USA003470

PATIENT
  Age: 23 Year
  Sex: Female

DRUGS (1)
  1. IMPLANON [Suspect]
     Indication: CONTRACEPTION
     Dosage: UNK
     Route: 059
     Dates: start: 20121220

REACTIONS (3)
  - Implant site pain [Not Recovered/Not Resolved]
  - Application site discomfort [Unknown]
  - Medical device complication [Unknown]
